FAERS Safety Report 4647391-4 (Version None)
Quarter: 2005Q2

REPORT INFORMATION
  Report Type: 
  Country: None (occurrence: None)
  Receive Date: 20050427
  Receipt Date: 20050427
  Transmission Date: 20051028
  Serious: Yes (Life-Threatening, Other)
  Sender: FDA-Public Use
  Company Number: None

PATIENT
  Weight: 72.5755 kg

DRUGS (3)
  1. WELLBUTRIN XL [Suspect]
     Indication: ATYPICAL ATTENTION DEFICIT SYNDROME
     Dosage: 450 MG DAILY ORAL
     Route: 048
     Dates: start: 20020601, end: 20041030
  2. ZOLOFT [Suspect]
     Indication: ANXIETY
     Dosage: 75 MG DAILY ORAL
     Route: 048
     Dates: start: 20040901, end: 20041030
  3. ZOLOFT [Suspect]
     Indication: DEPRESSION
     Dosage: 75 MG DAILY ORAL
     Route: 048
     Dates: start: 20040901, end: 20041030

REACTIONS (10)
  - AGGRESSION [None]
  - ANXIETY [None]
  - ASTHENIA [None]
  - CONFUSIONAL STATE [None]
  - DEPRESSION [None]
  - DRUG EFFECT DECREASED [None]
  - DYSSTASIA [None]
  - HYPERHIDROSIS [None]
  - TENSION [None]
  - TREMOR [None]
